FAERS Safety Report 6484372-2 (Version None)
Quarter: 2009Q4

REPORT INFORMATION
  Report Type: 
  Country: None (occurrence: None)
  Receive Date: 20091209
  Receipt Date: 20091130
  Transmission Date: 20100525
  Serious: No
  Sender: FDA-Public Use
  Company Number: US-JNJFOC-20091200397

PATIENT
  Sex: Female
  Weight: 86.18 kg

DRUGS (1)
  1. SANDOZ FENTANYL TRANSDERMAL SYSTEM [Suspect]
     Indication: BACK PAIN
     Route: 062

REACTIONS (4)
  - DRUG ADMINISTERED AT INAPPROPRIATE SITE [None]
  - MUSCLE TWITCHING [None]
  - WITHDRAWAL SYNDROME [None]
  - WRONG TECHNIQUE IN DRUG USAGE PROCESS [None]
